FAERS Safety Report 7449868-5 (Version None)
Quarter: 2011Q2

REPORT INFORMATION
  Report Type: 
  Country: None (occurrence: None)
  Receive Date: 20110421
  Receipt Date: 20110406
  Transmission Date: 20111010
  Serious: Yes (Other)
  Sender: FDA-Public Use
  Company Number: AUR-APL-2011-01213

PATIENT
  Age: 24 Year
  Sex: Male
  Weight: 88.9 kg

DRUGS (3)
  1. CITALOPRAM HYDROBROMIDE [Suspect]
     Indication: OBSESSIVE-COMPULSIVE DISORDER
     Dosage: 20MG-DAILY-
     Dates: start: 20081227
  2. CITALOPRAM HYDROBROMIDE [Suspect]
     Indication: OBSESSIVE-COMPULSIVE DISORDER
     Dosage: 40MG-DAILY-
     Dates: end: 20090120
  3. LORAZEPAM [Concomitant]

REACTIONS (4)
  - PREMATURE EJACULATION [None]
  - DEPRESSED MOOD [None]
  - LIBIDO DECREASED [None]
  - HEADACHE [None]
